FAERS Safety Report 17661637 (Version 1)
Quarter: 2020Q2

REPORT INFORMATION
  Report Type: Report from Study
  Country: KR (occurrence: KR)
  Receive Date: 20200413
  Receipt Date: 20200413
  Transmission Date: 20200713
  Serious: Yes (Hospitalization, Other)
  Sender: FDA-Public Use
  Company Number: KR-BRISTOL-MYERS SQUIBB COMPANY-BMS-2020-029934

PATIENT
  Age: 79 Year
  Sex: Female
  Weight: 47 kg

DRUGS (4)
  1. PACLITAXEL. [Suspect]
     Active Substance: PACLITAXEL
     Indication: GASTRIC CANCER
     Dosage: 80 MILLIGRAM/SQ. METER (110 MILLIGRAM)
     Route: 065
     Dates: start: 20191202
  2. NIVOLUMAB [Suspect]
     Active Substance: NIVOLUMAB
     Indication: GASTRIC CANCER
     Dosage: 3 MILLIGRAM/KILOGRAM (155 MILLIGRAM)
     Route: 065
     Dates: start: 20191202
  3. HARMONILAN [Concomitant]
     Indication: MALNUTRITION
     Dosage: 200 MILLILITER, QD
     Route: 048
     Dates: start: 20200323
  4. APETROL [MEGESTROL ACETATE] [Concomitant]
     Indication: DECREASED APPETITE
     Dosage: 5.2 MILLILITER, QD
     Route: 048
     Dates: start: 20200323

REACTIONS (1)
  - Septic shock [Recovering/Resolving]

NARRATIVE: CASE EVENT DATE: 20200407
